FAERS Safety Report 10067261 (Version 2)
Quarter: 2014Q3

REPORT INFORMATION
  Report Type: Spontaneous
  Country: US (occurrence: None)
  Receive Date: 20140407
  Receipt Date: 20140728
  Transmission Date: 20150326
  Serious: Yes (Death)
  Sender: FDA-Public Use
  Company Number: UTC-046640

PATIENT
  Age: 76 Year
  Sex: Female
  Weight: 116 kg

DRUGS (1)
  1. TYVASO [Suspect]
     Active Substance: TREPROSTINIL
     Indication: PULMONARY ARTERIAL HYPERTENSION
     Dosage: 18-54 MICROGRAMS (4 IN 1 D)
     Route: 055
     Dates: start: 20130702

REACTIONS (1)
  - Death [None]

NARRATIVE: CASE EVENT DATE: 20140314
